FAERS Safety Report 24031077 (Version 2)
Quarter: 2024Q3

REPORT INFORMATION
  Report Type: Report from Study
  Country: CA (occurrence: CA)
  Receive Date: 20240628
  Receipt Date: 20240702
  Transmission Date: 20241017
  Serious: Yes (Hospitalization)
  Sender: HLS THERAPEUTICS
  Company Number: CA-HLS-202401592

PATIENT
  Sex: Male

DRUGS (1)
  1. CLOZARIL [Suspect]
     Active Substance: CLOZAPINE
     Indication: Product used for unknown indication
     Route: 048
     Dates: start: 20221021, end: 20240619

REACTIONS (3)
  - Product dispensing error [Not Recovered/Not Resolved]
  - Psychiatric decompensation [Unknown]
  - Therapy interrupted [Unknown]
